FAERS Safety Report 5822043-3 (Version None)
Quarter: 2008Q3

REPORT INFORMATION
  Report Type: 
  Country: None (occurrence: None)
  Receive Date: 20080717
  Receipt Date: 20080717
  Transmission Date: 20090109
  Serious: Yes (Other)
  Sender: FDA-Public Use
  Company Number: 1-16373107/MED-08125

PATIENT
  Age: 41 Year
  Sex: Male

DRUGS (5)
  1. GABAPENTIN [Suspect]
     Indication: NEURALGIA
     Dosage: 1,200 MG PER DAY, ORAL
     Route: 048
  2. UNKNOWN NON-STEROIDAL ANTI-INFLAMMATORY DRUG [Concomitant]
  3. ACETAMINOPHEN [Concomitant]
  4. MORPHINE INJECTIONS [Concomitant]
  5. IMIPRAMINE                     (150 MG/DAY) [Concomitant]

REACTIONS (2)
  - CEREBRAL HYPOPERFUSION [None]
  - CHOREA [None]
